FAERS Safety Report 4876867-X (Version None)
Quarter: 2006Q1

REPORT INFORMATION
  Report Type: 
  Country: None (occurrence: None)
  Receive Date: 20060109
  Receipt Date: 20060109
  Transmission Date: 20060701
  Serious: Yes (Hospitalization)
  Sender: FDA-Public Use
  Company Number: None

PATIENT
  Age: 54 Year
  Sex: Male
  Weight: 88.905 kg

DRUGS (2)
  1. PACLITAXEL 350 MG 100 MG [Suspect]
     Indication: NON-SMALL CELL LUNG CANCER
     Dosage: 350 MG IV
     Route: 042
     Dates: start: 20051117, end: 20051228
  2. CARBOPLATIN [Suspect]
     Indication: NON-SMALL CELL LUNG CANCER
     Dosage: 777 MG IV
     Route: 042
     Dates: start: 20051017, end: 20051128

REACTIONS (6)
  - ARTHRALGIA [None]
  - DYSPNOEA [None]
  - EMPYEMA [None]
  - MYALGIA [None]
  - PAIN [None]
  - PYREXIA [None]
